FAERS Safety Report 9217788 (Version 1)
Quarter: 2013Q2

REPORT INFORMATION
  Report Type: Spontaneous
  Country: ES (occurrence: ES)
  Receive Date: 20130408
  Receipt Date: 20130408
  Transmission Date: 20140414
  Serious: Yes (Other)
  Sender: FDA-Public Use
  Company Number: ES-ROCHE-1211090

PATIENT
  Age: 87 Year
  Sex: Female

DRUGS (7)
  1. LUCENTIS [Suspect]
     Indication: MACULAR DEGENERATION
     Route: 050
     Dates: start: 20101221
  2. LUCENTIS [Suspect]
     Route: 050
     Dates: start: 2011
  3. LUCENTIS [Suspect]
     Route: 050
     Dates: start: 20120313, end: 20120313
  4. LORMETAZEPAM [Concomitant]
  5. APROVEL [Concomitant]
  6. ASPIRIN [Concomitant]
  7. DAFLON (SPAIN) [Concomitant]

REACTIONS (1)
  - Cerebellar infarction [Recovered/Resolved with Sequelae]
